FAERS Safety Report 7750683-3 (Version None)
Quarter: 2011Q3

REPORT INFORMATION
  Report Type: 
  Country: None (occurrence: None)
  Receive Date: 20110912
  Receipt Date: 20110827
  Transmission Date: 20111222
  Serious: Yes (Life-Threatening)
  Sender: FDA-Public Use
  Company Number: 2011NA000073

PATIENT
  Age: 60 Year
  Sex: Female

DRUGS (6)
  1. PROMETHAZINE [Concomitant]
  2. DICLOFENAC SODIUM [Suspect]
     Indication: PRODUCT USED FOR UNKNOWN INDICATION
     Dosage: ;BID;, 1X;
  3. DICLOFENAC SODIUM [Suspect]
     Indication: PRODUCT USED FOR UNKNOWN INDICATION
     Dosage: ;BID;, 1X;
  4. CEFOTAXIME [Concomitant]
  5. METRONIDAZOLE [Concomitant]
  6. MEPERIDINE HCL [Concomitant]

REACTIONS (14)
  - URINARY RETENTION [None]
  - GINGIVAL BLEEDING [None]
  - HAEMOGLOBIN DECREASED [None]
  - EPISTAXIS [None]
  - THROMBOCYTOPENIA [None]
  - POST PROCEDURAL COMPLICATION [None]
  - HAEMATURIA [None]
  - ECCHYMOSIS [None]
  - HAEMATEMESIS [None]
  - VAGINAL HAEMORRHAGE [None]
  - INJECTION SITE HAEMATOMA [None]
  - HAEMATOCOELE [None]
  - ABDOMINAL PAIN LOWER [None]
  - PURPURA [None]
